FAERS Safety Report 21056130 (Version 1)
Quarter: 2022Q3

REPORT INFORMATION
  Report Type: Spontaneous
  Country: US (occurrence: US)
  Receive Date: 20220708
  Receipt Date: 20220708
  Transmission Date: 20221026
  Serious: No
  Sender: FDA-Public Use
  Company Number: US-ORGANON-O2207USA000027

PATIENT
  Sex: Female

DRUGS (6)
  1. FOLLISTIM AQ [Suspect]
     Active Substance: FOLLITROPIN
     Indication: Infertility female
     Dosage: 900 IU/1.08 ML (INJECT 225 UNITS UNDER THE SKIN EVERYDAY ALSO REPORTED AS INJECT 300 UNIT UNDER THE
     Route: 058
     Dates: start: 20220209
  2. GONADOTROPIN, CHORIONIC [Concomitant]
     Active Substance: CHORIOGONADOTROPIN ALFA
  3. AZITHROMYCIN [Concomitant]
     Active Substance: AZITHROMYCIN
  4. LEUPROLIDE ACETATE [Concomitant]
     Active Substance: LEUPROLIDE ACETATE
  5. MENOPUR [Concomitant]
     Active Substance: FOLLITROPIN\LUTEINIZING HORMONE
  6. PROGESTERONE [Concomitant]
     Active Substance: PROGESTERONE

REACTIONS (4)
  - Tenderness [Unknown]
  - Contusion [Unknown]
  - Hypoaesthesia [Unknown]
  - Feeling abnormal [Unknown]
